FAERS Safety Report 11976472 (Version 1)
Quarter: 2016Q1

REPORT INFORMATION
  Report Type: Other
  Country: FR (occurrence: FR)
  Receive Date: 20160129
  Receipt Date: 20160129
  Transmission Date: 20160526
  Serious: Yes (Hospitalization, Other)
  Sender: FDA-Public Use
  Company Number: FR-ASTELLAS-2016US003024

PATIENT
  Age: 3 Year
  Sex: Male
  Weight: 17 kg

DRUGS (4)
  1. RIFADINE                           /00146901/ [Interacting]
     Active Substance: RIFAMPIN
     Indication: PRODUCT USED FOR UNKNOWN INDICATION
     Route: 048
     Dates: start: 20151222, end: 20160106
  2. MODIGRAF [Interacting]
     Active Substance: TACROLIMUS
     Dosage: 0.8 MG, TWICE DAILY
     Route: 048
     Dates: start: 20151224
  3. MODIGRAF [Interacting]
     Active Substance: TACROLIMUS
     Route: 048
     Dates: start: 20151228, end: 20151231
  4. MODIGRAF [Suspect]
     Active Substance: TACROLIMUS
     Indication: LIVER TRANSPLANT
     Dosage: 1.5 MG (LOADING DOSE), UNKNOWN FREQ.
     Route: 048
     Dates: start: 20151223

REACTIONS (3)
  - Drug interaction [Unknown]
  - Immunosuppressant drug level decreased [Recovered/Resolved]
  - Drug ineffective [Recovered/Resolved]

NARRATIVE: CASE EVENT DATE: 20151225
